FAERS Safety Report 8430538-1 (Version None)
Quarter: 2012Q2

REPORT INFORMATION
  Report Type: 
  Country: None (occurrence: None)
  Receive Date: 20120612
  Receipt Date: 20120606
  Transmission Date: 20120825
  Serious: Yes (Hospitalization)
  Sender: FDA-Public Use
  Company Number: US-GLAXOSMITHKLINE-A0980355A

PATIENT
  Age: 52 Year
  Sex: Male

DRUGS (5)
  1. CONCURRENT MEDICATIONS [Concomitant]
  2. PREDNISONE [Concomitant]
  3. DONEPEZIL HCL [Concomitant]
  4. NEBULIZER [Concomitant]
  5. ADVAIR DISKUS 100/50 [Suspect]
     Indication: CHRONIC OBSTRUCTIVE PULMONARY DISEASE
     Dosage: 1PUFF TWICE PER DAY
     Route: 055
     Dates: start: 20111101

REACTIONS (5)
  - CHEST DISCOMFORT [None]
  - THERAPEUTIC RESPONSE DECREASED [None]
  - NON-CARDIAC CHEST PAIN [None]
  - OVERDOSE [None]
  - CHRONIC OBSTRUCTIVE PULMONARY DISEASE [None]
